FAERS Safety Report 7211147-9 (Version None)
Quarter: 2010Q4

REPORT INFORMATION
  Report Type: 
  Country: None (occurrence: None)
  Receive Date: 20101223
  Receipt Date: 20090129
  Transmission Date: 20110411
  Serious: Yes (Hospitalization, Other)
  Sender: FDA-Public Use
  Company Number: 2009AP000387

PATIENT
  Age: 47 Year
  Sex: Female

DRUGS (2)
  1. DESMOPRESSIN ACETATE [Suspect]
     Indication: DIABETES INSIPIDUS
     Dosage: ;NAS
     Route: 045
  2. DESMOPRESSIN ACETATE [Suspect]
     Indication: DIABETES INSIPIDUS
     Dosage: SC, IM

REACTIONS (8)
  - BACTERAEMIA [None]
  - CONFUSIONAL STATE [None]
  - ELECTROLYTE IMBALANCE [None]
  - HYPONATRAEMIA [None]
  - MEMORY IMPAIRMENT [None]
  - SELF-MEDICATION [None]
  - SUBDURAL HYGROMA [None]
  - WRONG DRUG ADMINISTERED [None]
